FAERS Safety Report 19253388 (Version 1)
Quarter: 2021Q2

REPORT INFORMATION
  Report Type: Spontaneous
  Country: US (occurrence: US)
  Receive Date: 20210513
  Receipt Date: 20210513
  Transmission Date: 20210717
  Serious: No
  Sender: FDA-Public Use
  Company Number: US-GLENMARK PHARMACEUTICALS-2020GMK049052

PATIENT

DRUGS (1)
  1. NAPROXEN SODIUM C [Suspect]
     Active Substance: NAPROXEN SODIUM
     Indication: OSTEITIS
     Dosage: UNK
     Route: 048
     Dates: start: 20200727, end: 202008

REACTIONS (3)
  - Wrong technique in product usage process [Unknown]
  - No adverse event [Unknown]
  - Incorrect dose administered [Unknown]

NARRATIVE: CASE EVENT DATE: 2020
